FAERS Safety Report 4881409-9 (Version None)
Quarter: 2005Q4

REPORT INFORMATION
  Report Type: 
  Country: None (occurrence: None)
  Receive Date: 20051201
  Receipt Date: 20050731
  Transmission Date: 20060501
  Serious: No
  Sender: FDA-Public Use
  Company Number: 2005PV000692

PATIENT
  Age: 58 Year
  Sex: Female

DRUGS (14)
  1. BYETTA [Suspect]
     Indication: DIABETES MELLITUS NON-INSULIN-DEPENDENT
     Dosage: SEE IMAGE
     Route: 058
     Dates: start: 20050601, end: 20050628
  2. BYETTA [Suspect]
     Indication: DIABETES MELLITUS NON-INSULIN-DEPENDENT
     Dosage: SEE IMAGE
     Route: 058
     Dates: start: 20050629
  3. AVANDIA [Concomitant]
  4. NIACIN [Concomitant]
  5. LIPITOR [Concomitant]
  6. DESIPRAMINE HCL [Concomitant]
  7. PREDNISONE [Concomitant]
  8. THYROXINE [Concomitant]
  9. LISINOPRIL [Concomitant]
  10. EVISTA [Concomitant]
  11. HUMATROP [Concomitant]
  12. LUMIGAN [Concomitant]
  13. COSOPT [Concomitant]
  14. TRAVATAN [Concomitant]

REACTIONS (4)
  - DEHYDRATION [None]
  - NAUSEA [None]
  - VOMITING [None]
  - WEIGHT DECREASED [None]
